FAERS Safety Report 4972170-8 (Version None)
Quarter: 2006Q2

REPORT INFORMATION
  Report Type: 
  Country: None (occurrence: None)
  Receive Date: 20060413
  Receipt Date: 20051216
  Transmission Date: 20061013
  Serious: Yes (Death, Other)
  Sender: FDA-Public Use
  Company Number: PHEH2005US13576

PATIENT
  Age: 41 Year
  Sex: Female
  Weight: 84.353 kg

DRUGS (10)
  1. ZOMETA [Suspect]
     Indication: METASTASES TO BONE
     Dosage: 4 MG ONE TIME PER MONTH
     Dates: start: 20020409, end: 20040908
  2. NEURONTIN [Concomitant]
  3. LORTAB [Concomitant]
  4. NEXIUM [Concomitant]
  5. WELLBUTRIN XL [Concomitant]
  6. OXYCONTIN [Concomitant]
  7. GLUCOPHAGE [Concomitant]
     Indication: DIABETES MELLITUS
  8. FASLODEX [Concomitant]
  9. HYZAAR [Concomitant]
     Indication: HYPERTENSION
  10. LIPITOR [Concomitant]

REACTIONS (8)
  - BIOPSY BONE ABNORMAL [None]
  - BONE DEBRIDEMENT [None]
  - BONE DISORDER [None]
  - ERYTHEMA [None]
  - GINGIVAL SWELLING [None]
  - MALIGNANT NEOPLASM PROGRESSION [None]
  - OSTEONECROSIS [None]
  - PAIN [None]
